FAERS Safety Report 12540894 (Version 1)
Quarter: 2016Q3

REPORT INFORMATION
  Report Type: Spontaneous
  Country: US (occurrence: US)
  Receive Date: 20160708
  Receipt Date: 20160708
  Transmission Date: 20161109
  Serious: No
  Sender: FDA-Public Use
  Company Number: US-ELI_LILLY_AND_COMPANY-US201606009952

PATIENT
  Sex: Male

DRUGS (4)
  1. BENZATROPINE [Concomitant]
     Active Substance: BENZTROPINE
     Dosage: 0.5 MG, AT BEDTIME
     Route: 065
  2. ZYPREXA [Suspect]
     Active Substance: OLANZAPINE
     Indication: PRODUCT USED FOR UNKNOWN INDICATION
     Dosage: UNK, UNKNOWN
     Route: 065
  3. ZYPREXA [Suspect]
     Active Substance: OLANZAPINE
     Dosage: 10 MG, TID
     Route: 065
  4. SERTRALINE [Concomitant]
     Active Substance: SERTRALINE HYDROCHLORIDE
     Dosage: 100 MG, AT BEDTIME
     Route: 065

REACTIONS (2)
  - Hallucination, auditory [Unknown]
  - Prescribed overdose [Unknown]
